FAERS Safety Report 4956338-2 (Version None)
Quarter: 2006Q1

REPORT INFORMATION
  Report Type: 
  Country: None (occurrence: None)
  Receive Date: 20060328
  Receipt Date: 20060328
  Transmission Date: 20060701
  Serious: Yes (Other)
  Sender: FDA-Public Use
  Company Number: None

PATIENT
  Sex: Male

DRUGS (6)
  1. ABILIFY [Suspect]
     Indication: BIPOLAR DISORDER
     Dosage: 2QHS
     Dates: start: 20060324, end: 20060325
  2. DEPAKOTE [Concomitant]
  3. CLONAZEPAM [Concomitant]
  4. NAPROXEN [Concomitant]
  5. SEROQUEL [Concomitant]
  6. TRAZADONE [Concomitant]

REACTIONS (1)
  - RASH [None]
